FAERS Safety Report 6968513-6 (Version None)
Quarter: 2010Q3

REPORT INFORMATION
  Report Type: 
  Country: None (occurrence: None)
  Receive Date: 20100907
  Receipt Date: 20100830
  Transmission Date: 20110219
  Serious: Yes (Death)
  Sender: FDA-Public Use
  Company Number: JP-ROCHE-724872

PATIENT
  Age: 73 Year
  Sex: Male

DRUGS (3)
  1. AVASTIN [Suspect]
     Indication: LARGE CELL CARCINOMA OF THE RESPIRATORY TRACT STAGE UNSPECIFIED
     Route: 041
     Dates: start: 20100803, end: 20100803
  2. CARBOPLATIN [Concomitant]
     Dosage: DOSAGE IS UNCERTAIN
     Route: 041
  3. ALIMTA [Concomitant]
     Dosage: DOSAGE IS UNCERTAIN
     Route: 041

REACTIONS (1)
  - DEATH [None]
